FAERS Safety Report 14261073 (Version 1)
Quarter: 2017Q4

REPORT INFORMATION
  Report Type: Spontaneous
  Country: GB (occurrence: GB)
  Receive Date: 20171207
  Receipt Date: 20171207
  Transmission Date: 20180321
  Serious: Yes (Death)
  Sender: FDA-Public Use
  Company Number: GB-ABBVIE-17K-167-2186565-00

PATIENT

DRUGS (2)
  1. HUMIRA [Suspect]
     Active Substance: ADALIMUMAB
     Indication: PRODUCT USED FOR UNKNOWN INDICATION
     Route: 058
  2. DEXAMETHASONE. [Concomitant]
     Active Substance: DEXAMETHASONE
     Indication: PRODUCT USED FOR UNKNOWN INDICATION

REACTIONS (9)
  - Hyperdynamic left ventricle [Fatal]
  - Electrocardiogram Q waves [Fatal]
  - Peripheral swelling [Fatal]
  - Respiratory failure [Fatal]
  - Vocal cord paralysis [Fatal]
  - Renal impairment [Fatal]
  - Cardiac failure congestive [Fatal]
  - Myocardial infarction [Fatal]
  - Lung infiltration [Fatal]
